FAERS Safety Report 23069018 (Version 1)
Quarter: 2023Q4

REPORT INFORMATION
  Report Type: Spontaneous
  Country: US (occurrence: US)
  Receive Date: 20231016
  Receipt Date: 20231016
  Transmission Date: 20240110
  Serious: Yes (Hospitalization)
  Sender: FDA-Public Use
  Company Number: US-BAYER-2023A140674

PATIENT
  Age: 26 Year
  Sex: Female

DRUGS (1)
  1. MIRENA [Suspect]
     Active Substance: LEVONORGESTREL
     Indication: Contraception
     Dosage: 20?G/DAY
     Route: 015
     Dates: start: 20210806, end: 20230927

REACTIONS (3)
  - Anxiety [Recovering/Resolving]
  - Chest pain [Not Recovered/Not Resolved]
  - Overweight [Recovering/Resolving]

NARRATIVE: CASE EVENT DATE: 20220103
